FAERS Safety Report 24106181 (Version 1)
Quarter: 2024Q3

REPORT INFORMATION
  Report Type: Spontaneous
  Country: DE (occurrence: None)
  Receive Date: 20240717
  Receipt Date: 20240717
  Transmission Date: 20241017
  Serious: Yes (Other)
  Sender: ASTRAZENECA
  Company Number: 2024A159293

PATIENT
  Sex: Female

DRUGS (1)
  1. TICAGRELOR [Suspect]
     Active Substance: TICAGRELOR
     Dosage: 1X IN THE MORNING AND 1X IN THE EVENING
     Route: 048

REACTIONS (7)
  - Myocardial infarction [Unknown]
  - Seizure [Unknown]
  - Muscle spasms [Unknown]
  - Dyspnoea [Unknown]
  - Bone pain [Unknown]
  - Asthma [Unknown]
  - Pain in extremity [Unknown]
